FAERS Safety Report 4331642-X (Version None)
Quarter: 2004Q1

REPORT INFORMATION
  Report Type: 
  Country: None (occurrence: None)
  Receive Date: 20040329
  Receipt Date: 20040316
  Transmission Date: 20041129
  Serious: Yes (Hospitalization)
  Sender: FDA-Public Use
  Company Number: 2004UW05587

PATIENT
  Age: 61 Year
  Sex: Male
  Weight: 68.0396 kg

DRUGS (10)
  1. XYLOCAINE W/ EPINEPHRINE [Suspect]
     Indication: ANAESTHESIA
     Dosage: 10 CC (1:50,000)
     Dates: start: 20040106, end: 20040106
  2. XYLOCAINE W/ EPINEPHRINE [Suspect]
     Indication: ANAESTHESIA
     Dosage: 50 CC (1:100,000)
     Dates: start: 20040106, end: 20040106
  3. REGLAN [Concomitant]
  4. PHENERGAN [Concomitant]
  5. MULTIVITAMIN [Concomitant]
  6. BOTOX [Concomitant]
  7. GLYCOPYRROLATE [Concomitant]
  8. DEXAMETHASONE [Concomitant]
  9. CEFAZOLIN [Concomitant]
  10. EPHEDRINE [Concomitant]

REACTIONS (3)
  - ANAESTHETIC COMPLICATION [None]
  - BLOOD PRESSURE INCREASED [None]
  - VENTRICULAR EXTRASYSTOLES [None]
